FAERS Safety Report 9260197 (Version 1)
Quarter: 2013Q2

REPORT INFORMATION
  Report Type: Spontaneous
  Country: US (occurrence: US)
  Receive Date: 20130429
  Receipt Date: 20130429
  Transmission Date: 20140414
  Serious: No
  Sender: FDA-Public Use
  Company Number: US-PFIZER INC-2013130387

PATIENT
  Sex: 0

DRUGS (1)
  1. GABAPENTIN [Suspect]
     Indication: COMPLEX REGIONAL PAIN SYNDROME
     Dosage: 100 MG, 1X/DAY

REACTIONS (2)
  - Drug intolerance [Unknown]
  - Off label use [Unknown]
